FAERS Safety Report 6288520-9 (Version None)
Quarter: 2009Q3

REPORT INFORMATION
  Report Type: 
  Country: None (occurrence: None)
  Receive Date: 20090729
  Receipt Date: 20090720
  Transmission Date: 20100115
  Serious: Yes (Hospitalization, Other)
  Sender: FDA-Public Use
  Company Number: US-AVENTIS-200915577US

PATIENT
  Sex: Male

DRUGS (18)
  1. LOVENOX [Suspect]
     Dates: start: 20090508, end: 20090515
  2. COUMADIN [Suspect]
     Indication: DEEP VEIN THROMBOSIS
     Dosage: DOSE: UNK
     Dates: end: 20090101
  3. COUMADIN [Suspect]
     Dates: start: 20090101, end: 20090101
  4. LEXAPRO [Concomitant]
  5. CECLOR [Concomitant]
  6. PERCOCET [Concomitant]
  7. NORVASC [Concomitant]
  8. DULCOLAX                           /00061602/ [Concomitant]
     Dosage: DOSE: UNK
  9. VIT D [Concomitant]
  10. COLACE [Concomitant]
  11. OMEPRAZOLE [Concomitant]
  12. FERROUS SULFATE TAB [Concomitant]
  13. ZETIA [Concomitant]
  14. LASIX [Concomitant]
  15. AMARYL [Concomitant]
  16. MAGNESIUM [Concomitant]
  17. LISINOPRIL [Concomitant]
  18. POLYETHYLENE GLYCOL [Concomitant]
     Indication: CONSTIPATION
     Dosage: DOSE: UNK

REACTIONS (20)
  - ABDOMINAL DISTENSION [None]
  - ABDOMINAL PAIN [None]
  - ALANINE AMINOTRANSFERASE INCREASED [None]
  - ASPARTATE AMINOTRANSFERASE INCREASED [None]
  - BLOOD ALKALINE PHOSPHATASE INCREASED [None]
  - BLOOD CREATININE INCREASED [None]
  - DEEP VEIN THROMBOSIS [None]
  - DRUG INEFFECTIVE [None]
  - GASTROINTESTINAL SOUNDS ABNORMAL [None]
  - HAEMATURIA [None]
  - HAEMOGLOBIN DECREASED [None]
  - ILEUS [None]
  - INJECTION SITE HAEMORRHAGE [None]
  - LIVER FUNCTION TEST ABNORMAL [None]
  - MUSCLE HAEMORRHAGE [None]
  - MUSCLE SWELLING [None]
  - PELVIC HAEMATOMA [None]
  - PNEUMONIA STAPHYLOCOCCAL [None]
  - RENAL FAILURE [None]
  - RETROPERITONEAL HAEMORRHAGE [None]
